FAERS Safety Report 25283642 (Version 1)
Quarter: 2025Q2

REPORT INFORMATION
  Report Type: Spontaneous
  Country: CN (occurrence: CN)
  Receive Date: 20250508
  Receipt Date: 20250508
  Transmission Date: 20250716
  Serious: Yes (Hospitalization)
  Sender: COHERUS
  Company Number: CN-SHANGHAI JUNSHI BIOSCIENCES CO., LTD.-CN2025013993

PATIENT

DRUGS (5)
  1. TORIPALIMAB [Suspect]
     Active Substance: TORIPALIMAB
     Indication: Transitional cell cancer of the renal pelvis and ureter
     Dosage: 140 MG, Q3W
     Route: 041
     Dates: start: 202404, end: 202503
  2. TORIPALIMAB [Suspect]
     Active Substance: TORIPALIMAB
     Dosage: 140 MG, Q3W
     Route: 041
     Dates: start: 20250324, end: 20250324
  3. DISITAMAB VEDOTIN [Concomitant]
     Active Substance: DISITAMAB VEDOTIN
     Indication: Transitional cell cancer of the renal pelvis and ureter
     Dosage: 120 MG, Q3W
     Route: 041
     Dates: start: 202404, end: 202503
  4. DISITAMAB VEDOTIN [Concomitant]
     Active Substance: DISITAMAB VEDOTIN
     Dosage: 120 MG, Q3W
     Route: 041
     Dates: start: 20250324, end: 20250324
  5. LEVAMLODIPINE MALEATE [Concomitant]
     Active Substance: LEVAMLODIPINE MALEATE
     Indication: Hypertension
     Route: 048

REACTIONS (4)
  - Hepatic enzyme increased [Recovering/Resolving]
  - Ocular icterus [Recovering/Resolving]
  - Yellow skin [Recovering/Resolving]
  - Blood bilirubin increased [Recovering/Resolving]

NARRATIVE: CASE EVENT DATE: 20250412
